FAERS Safety Report 4688067-7 (Version None)
Quarter: 2005Q2

REPORT INFORMATION
  Report Type: 
  Country: None (occurrence: None)
  Receive Date: 20050610
  Receipt Date: 20050603
  Transmission Date: 20051028
  Serious: Yes (Disabling)
  Sender: FDA-Public Use
  Company Number: FR-ROCHE-406729

PATIENT
  Age: 79 Year
  Sex: Male
  Weight: 93 kg

DRUGS (9)
  1. NAPROXEN SODIUM [Suspect]
     Indication: DRUG USE FOR UNKNOWN INDICATION
     Route: 048
     Dates: start: 20050324, end: 20050325
  2. NAPROXEN SODIUM [Suspect]
     Route: 048
     Dates: start: 20050331
  3. FRAGMIN [Interacting]
     Indication: DRUG USE FOR UNKNOWN INDICATION
     Dosage: DRUG NAME: FRAGMINE 5000 U ANTI XA
     Route: 058
     Dates: start: 20050324
  4. FRAGMIN [Interacting]
     Route: 058
     Dates: start: 20050331, end: 20050401
  5. FRAGMIN [Interacting]
     Route: 058
     Dates: start: 20050411
  6. FRAGMIN [Interacting]
     Route: 058
     Dates: start: 20050415
  7. DI ANTALVIC [Concomitant]
     Route: 048
     Dates: start: 20050331
  8. DYNASTAT [Concomitant]
     Route: 042
     Dates: end: 20050331
  9. OMEPRAZOLE [Concomitant]
     Route: 048
     Dates: start: 20050331

REACTIONS (4)
  - HAEMATOMA [None]
  - MENINGORRHAGIA [None]
  - OPERATIVE HAEMORRHAGE [None]
  - PARAPLEGIA [None]
